FAERS Safety Report 4649882-9 (Version None)
Quarter: 2005Q2

REPORT INFORMATION
  Report Type: 
  Country: None (occurrence: None)
  Receive Date: 20050428
  Receipt Date: 20050415
  Transmission Date: 20051028
  Serious: Yes (Other)
  Sender: FDA-Public Use
  Company Number: 2005061257

PATIENT
  Age: 26 Year
  Sex: Female

DRUGS (2)
  1. DEPO-PROVERA [Suspect]
     Indication: CONTRACEPTION
     Dosage: 150 MG (150 MG, INTERVAL: TRIMESTRAL, 1ST INJECTION); SEE IMAGE
     Dates: start: 19991201, end: 19991201
  2. DEPO-PROVERA [Suspect]
     Indication: CONTRACEPTION
     Dosage: 150 MG (150 MG, INTERVAL: TRIMESTRAL, 1ST INJECTION); SEE IMAGE
     Dates: start: 20010701, end: 20010701

REACTIONS (3)
  - AMENORRHOEA [None]
  - INFERTILITY FEMALE [None]
  - PROGESTERONE DECREASED [None]
